FAERS Safety Report 15575922 (Version 3)
Quarter: 2019Q3

REPORT INFORMATION
  Report Type: Report from Study
  Country: CO (occurrence: CO)
  Receive Date: 20181101
  Receipt Date: 20190911
  Transmission Date: 20191004
  Serious: Yes (Hospitalization, Other)
  Sender: FDA-Public Use
  Company Number: CO-ASTELLAS-2018US042555

PATIENT
  Age: 64 Year
  Sex: Female
  Weight: 63 kg

DRUGS (3)
  1. EVEROLIMUS. [Concomitant]
     Active Substance: EVEROLIMUS
     Dosage: 0.5 MG, EVERY 12 HOURS (STARTED TWO YEARS AGO)
     Route: 048
  2. TACROLIMUS. [Suspect]
     Active Substance: TACROLIMUS
     Indication: RENAL TRANSPLANT
     Dosage: 3 MG, ONCE DAILY, (3 CAPSULES OF 1 MG)
     Route: 048
     Dates: start: 20141227
  3. EVEROLIMUS. [Concomitant]
     Active Substance: EVEROLIMUS
     Indication: TRANSPLANT
     Route: 048
     Dates: start: 20141227

REACTIONS (14)
  - Chest pain [Recovered/Resolved]
  - Sneezing [Unknown]
  - Limb injury [Recovered/Resolved]
  - Skin cancer [Recovering/Resolving]
  - Viral infection [Recovered/Resolved]
  - Pain in jaw [Recovered/Resolved]
  - Tuberculosis [Recovered/Resolved]
  - Malaise [Recovering/Resolving]
  - Nasal injury [Recovering/Resolving]
  - Blood creatinine increased [Recovered/Resolved]
  - Abdominal hernia [Recovering/Resolving]
  - Nasal injury [Recovered/Resolved]
  - Blood creatinine increased [Recovering/Resolving]
  - Gastritis [Unknown]

NARRATIVE: CASE EVENT DATE: 2017
